FAERS Safety Report 15171506 (Version 2)
Quarter: 2018Q3

REPORT INFORMATION
  Report Type: Spontaneous
  Country: DE (occurrence: DE)
  Receive Date: 20180720
  Receipt Date: 20180724
  Transmission Date: 20181010
  Serious: Yes (Death, Hospitalization, Other)
  Sender: FDA-Public Use
  Company Number: DE-PFIZER INC-2018290363

PATIENT
  Age: 76 Year
  Sex: Male
  Weight: 88 kg

DRUGS (77)
  1. CALCIUM FOLINATE [Suspect]
     Active Substance: LEUCOVORIN CALCIUM
     Dosage: DAILY DOSE: 800 MG MILLGRAM(S) EVERY WEEKS
     Route: 042
     Dates: start: 20130917, end: 20130917
  2. CALCIUM FOLINATE [Suspect]
     Active Substance: LEUCOVORIN CALCIUM
     Dosage: DAILY DOSE: 800 MG MILLGRAM(S) EVERY WEEKS
     Route: 042
     Dates: start: 20131112, end: 20131112
  3. CALCIUM FOLINATE [Suspect]
     Active Substance: LEUCOVORIN CALCIUM
     Dosage: DAILY DOSE: 800 MG MILLGRAM(S) EVERY WEEKS
     Route: 042
     Dates: start: 20131103, end: 20131103
  4. CALCIUM FOLINATE [Suspect]
     Active Substance: LEUCOVORIN CALCIUM
     Dosage: DAILY DOSE: 745 MG MILLGRAM(S) EVERY WEEKS
     Route: 042
     Dates: start: 20130217, end: 20130217
  5. CALCIUM FOLINATE [Suspect]
     Active Substance: LEUCOVORIN CALCIUM
     Dosage: DAILY DOSE: 800 MG MILLGRAM(S) EVERY WEEKS
     Route: 042
     Dates: start: 20140416, end: 20140416
  6. IRINOTECAN HCL [Suspect]
     Active Substance: IRINOTECAN HYDROCHLORIDE
     Dosage: DAILY DOSE: 90 MG MILLGRAM(S) EVERY WEEKS
     Route: 042
     Dates: start: 20131203, end: 20131203
  7. IRINOTECAN HCL [Suspect]
     Active Substance: IRINOTECAN HYDROCHLORIDE
     Dosage: DAILY DOSE: 75 MG MILLGRAM(S) EVERY WEEKS
     Route: 042
     Dates: start: 20140127, end: 20140127
  8. IRINOTECAN HCL [Suspect]
     Active Substance: IRINOTECAN HYDROCHLORIDE
     Dosage: DAILY DOSE: 120 MG MILLGRAM(S) EVERY WEEKS
     Route: 042
     Dates: start: 20131014, end: 20131014
  9. AVASTIN [Suspect]
     Active Substance: BEVACIZUMAB
     Dosage: DAILY DOSE: 415 MG MILLGRAM(S) EVERY 2 WEEKS
     Route: 042
     Dates: start: 20131203, end: 20131203
  10. BISO LICH [Concomitant]
     Active Substance: BISOPROLOL
     Indication: HYPERTENSION
     Route: 048
     Dates: end: 1999
  11. IRINOTECAN HCL [Suspect]
     Active Substance: IRINOTECAN HYDROCHLORIDE
     Dosage: DAILY DOSE: 120 MG MILLGRAM(S) EVERY WEEKS
     Route: 042
     Dates: start: 20131001, end: 20131001
  12. FLUOROURACIL. [Suspect]
     Active Substance: FLUOROURACIL
     Dosage: DAILY DOSE: 27500 MG MILLGRAM(S) EVERY WEEKS
     Route: 041
     Dates: start: 20130717, end: 20131211
  13. FLUOROURACIL. [Suspect]
     Active Substance: FLUOROURACIL
     Dosage: DAILY DOSE: 2500 MG MILLGRAM(S) EVERY WEEKS
     Route: 042
     Dates: start: 20131007, end: 20131008
  14. FLUOROURACIL. [Suspect]
     Active Substance: FLUOROURACIL
     Dosage: DAILY DOSE: 2500 MG MILLGRAM(S) EVERY WEEKS
     Route: 042
     Dates: start: 20131105, end: 20131113
  15. CALCIUM FOLINATE [Suspect]
     Active Substance: LEUCOVORIN CALCIUM
     Dosage: DAILY DOSE: 800 MG MILLGRAM(S) EVERY WEEKS
     Route: 042
     Dates: start: 20140402, end: 20140402
  16. CALCIUM FOLINATE [Suspect]
     Active Substance: LEUCOVORIN CALCIUM
     Dosage: DAILY DOSE: 800 MG MILLGRAM(S) EVERY WEEKS
     Route: 042
     Dates: start: 20131105, end: 20131105
  17. CALCIUM FOLINATE [Suspect]
     Active Substance: LEUCOVORIN CALCIUM
     Dosage: DAILY DOSE: 800 MG MILLGRAM(S) EVERY WEEKS
     Route: 042
     Dates: start: 20130924, end: 20130924
  18. IRINOTECAN HCL [Suspect]
     Active Substance: IRINOTECAN HYDROCHLORIDE
     Dosage: DAILY DOSE: 75 MG MILLGRAM(S) EVERY WEEKS
     Route: 042
     Dates: start: 20140224, end: 20140224
  19. IRINOTECAN HCL [Suspect]
     Active Substance: IRINOTECAN HYDROCHLORIDE
     Dosage: DAILY DOSE: 120 MG MILLGRAM(S) EVERY WEEKS
     Route: 042
     Dates: start: 20131007, end: 20131007
  20. FLUOROURACIL. [Suspect]
     Active Substance: FLUOROURACIL
     Dosage: DAILY DOSE: 1850 MG MILLGRAM(S) EVERY WEEKS
     Route: 042
     Dates: start: 20140120, end: 20140121
  21. FLUOROURACIL. [Suspect]
     Active Substance: FLUOROURACIL
     Dosage: DAILY DOSE: 1850 MG MILLGRAM(S) EVERY WEEKS
     Route: 042
     Dates: start: 20140402, end: 20140403
  22. FLUOROURACIL. [Suspect]
     Active Substance: FLUOROURACIL
     Dosage: DAILY DOSE: 1850 MG MILLGRAM(S) EVERY WEEKS
     Route: 042
     Dates: start: 20140326, end: 20140327
  23. SEVIKAR [Concomitant]
     Active Substance: AMLODIPINE BESYLATE\OLMESARTAN MEDOXOMIL
     Indication: HYPERTENSION
     Route: 048
     Dates: start: 1999
  24. ALOXI [Concomitant]
     Active Substance: PALONOSETRON HYDROCHLORIDE
     Indication: VOMITING
     Dosage: DAILY DOSE: 500 ?G MICROGRAM(S) EVERY DAYS
     Route: 065
     Dates: start: 20140417, end: 20140417
  25. CALCIUM FOLINATE [Suspect]
     Active Substance: LEUCOVORIN CALCIUM
     Dosage: DAILY DOSE: 745 MG MILLGRAM(S) EVERY WEEKS
     Route: 042
     Dates: start: 20130203, end: 20130203
  26. CALCIUM FOLINATE [Suspect]
     Active Substance: LEUCOVORIN CALCIUM
     Dosage: DAILY DOSE: 800 MG MILLGRAM(S) EVERY WEEKS
     Route: 042
     Dates: start: 20131007, end: 20131007
  27. CALCIUM FOLINATE [Suspect]
     Active Substance: LEUCOVORIN CALCIUM
     Dosage: DAILY DOSE: 745 MG MILLGRAM(S) EVERY WEEKS
     Route: 042
     Dates: start: 20140120, end: 20140120
  28. CALCIUM FOLINATE [Suspect]
     Active Substance: LEUCOVORIN CALCIUM
     Dosage: DAILY DOSE: 800 MG MILLGRAM(S) EVERY WEEKS
     Route: 042
     Dates: start: 20140326, end: 20140326
  29. IRINOTECAN HCL [Suspect]
     Active Substance: IRINOTECAN HYDROCHLORIDE
     Dosage: 80 MG/M2,
     Route: 042
     Dates: start: 20130917, end: 20130917
  30. IRINOTECAN HCL [Suspect]
     Active Substance: IRINOTECAN HYDROCHLORIDE
     Dosage: DAILY DOSE: 75 MG MILLGRAM(S) EVERY WEEKS
     Route: 042
     Dates: start: 20140402, end: 20140402
  31. IRINOTECAN HCL [Suspect]
     Active Substance: IRINOTECAN HYDROCHLORIDE
     Dosage: DAILY DOSE: 75 MG MILLGRAM(S) EVERY WEEKS
     Route: 042
     Dates: start: 20140409, end: 20140409
  32. FLUOROURACIL. [Suspect]
     Active Substance: FLUOROURACIL
     Dosage: DAILY DOSE: 2500 MG MILLGRAM(S) EVERY WEEKS
     Route: 042
     Dates: start: 20131119, end: 20131120
  33. FLUOROURACIL. [Suspect]
     Active Substance: FLUOROURACIL
     Dosage: DAILY DOSE: 2500 MG MILLGRAM(S) EVERY WEEKS
     Route: 042
     Dates: start: 20131001, end: 20131002
  34. FLUOROURACIL. [Suspect]
     Active Substance: FLUOROURACIL
     Dosage: DAILY DOSE: 1850 MG MILLGRAM(S) EVERY WEEKS
     Route: 042
     Dates: start: 20140319, end: 20140320
  35. FLUOROURACIL. [Suspect]
     Active Substance: FLUOROURACIL
     Dosage: DAILY DOSE: 1850 MG MILLGRAM(S) EVERY WEEKS
     Route: 042
     Dates: start: 20140224, end: 20140225
  36. CALCIUM FOLINATE [Suspect]
     Active Substance: LEUCOVORIN CALCIUM
     Dosage: DAILY DOSE: 800 MG MILLGRAM(S) EVERY WEEKS
     Route: 042
     Dates: start: 20131001, end: 20131001
  37. CALCIUM FOLINATE [Suspect]
     Active Substance: LEUCOVORIN CALCIUM
     Dosage: DAILY DOSE: 800 MG MILLGRAM(S) EVERY WEEKS
     Route: 042
     Dates: start: 20140319, end: 20140319
  38. CALCIUM FOLINATE [Suspect]
     Active Substance: LEUCOVORIN CALCIUM
     Dosage: DAILY DOSE: 800 MG MILLGRAM(S) EVERY WEEKS
     Route: 042
     Dates: start: 20131126, end: 20131126
  39. IRINOTECAN HCL [Suspect]
     Active Substance: IRINOTECAN HYDROCHLORIDE
     Dosage: DAILY DOSE: 75 MG MILLGRAM(S) EVERY WEEKS
     Route: 042
     Dates: start: 20140217, end: 20140217
  40. IRINOTECAN HCL [Suspect]
     Active Substance: IRINOTECAN HYDROCHLORIDE
     Dosage: DAILY DOSE: 75 MG MILLGRAM(S) EVERY WEEKS
     Route: 042
     Dates: start: 20140326, end: 20140326
  41. IRINOTECAN HCL [Suspect]
     Active Substance: IRINOTECAN HYDROCHLORIDE
     Dosage: DAILY DOSE: 90 MG MILLGRAM(S) EVERY WEEKS
     Route: 042
     Dates: start: 20131210, end: 20131210
  42. AVASTIN [Suspect]
     Active Substance: BEVACIZUMAB
     Dosage: DAILY DOSE: 340 MG MILLGRAM(S) EVERY 2 WEEKS
     Route: 042
     Dates: start: 20140416, end: 20140416
  43. FLUOROURACIL. [Suspect]
     Active Substance: FLUOROURACIL
     Dosage: DAILY DOSE: 1850 MG MILLGRAM(S) EVERY WEEKS
     Route: 042
     Dates: start: 20140416, end: 20140417
  44. FLUOROURACIL. [Suspect]
     Active Substance: FLUOROURACIL
     Dosage: DAILY DOSE: 2500 MG MILLGRAM(S) EVERY WEEKS
     Route: 042
     Dates: start: 20131112, end: 20131113
  45. HYDROCHLOROTHIAZIDE. [Concomitant]
     Active Substance: HYDROCHLOROTHIAZIDE
     Indication: HYPERTENSION
     Route: 048
     Dates: start: 1999
  46. CALCIUM FOLINATE [Suspect]
     Active Substance: LEUCOVORIN CALCIUM
     Dosage: DAILY DOSE: 745 MG MILLGRAM(S) EVERY WEEKS
     Route: 042
     Dates: start: 20140224, end: 20140224
  47. CALCIUM FOLINATE [Suspect]
     Active Substance: LEUCOVORIN CALCIUM
     Dosage: DAILY DOSE: 800 MG MILLGRAM(S) EVERY WEEKS
     Route: 042
     Dates: start: 20131119, end: 20131119
  48. IRINOTECAN HCL [Suspect]
     Active Substance: IRINOTECAN HYDROCHLORIDE
     Dosage: DAILY DOSE: 90 MG MILLGRAM(S) EVERY WEEKS
     Route: 042
     Dates: start: 20131112, end: 20131112
  49. IRINOTECAN HCL [Suspect]
     Active Substance: IRINOTECAN HYDROCHLORIDE
     Dosage: DAILY DOSE: 90 MG MILLGRAM(S) EVERY WEEKS
     Route: 042
     Dates: start: 20131126, end: 20131126
  50. FLUOROURACIL. [Suspect]
     Active Substance: FLUOROURACIL
     Dosage: DAILY DOSE: 2500 MG MILLGRAM(S) EVERY WEEKS
     Route: 042
     Dates: start: 20131014, end: 20131015
  51. FLUOROURACIL. [Suspect]
     Active Substance: FLUOROURACIL
     Dosage: DAILY DOSE: 2500 MG MILLGRAM(S) EVERY WEEKS
     Route: 042
     Dates: start: 20131203, end: 20131204
  52. FLUOROURACIL. [Suspect]
     Active Substance: FLUOROURACIL
     Dosage: DAILY DOSE: 1850 MG MILLGRAM(S) EVERY WEEKS
     Route: 042
     Dates: start: 20140210, end: 20140211
  53. FLUOROURACIL. [Suspect]
     Active Substance: FLUOROURACIL
     Dosage: DAILY DOSE: 2500 MG MILLGRAM(S) EVERY WEEKS
     Route: 042
     Dates: start: 20131126, end: 20131127
  54. GLIMEPIRIDE. [Concomitant]
     Active Substance: GLIMEPIRIDE
     Indication: DIABETES MELLITUS
     Route: 048
     Dates: start: 1999
  55. CALCIUM FOLINATE [Suspect]
     Active Substance: LEUCOVORIN CALCIUM
     Dosage: DAILY DOSE: 800 MG MILLGRAM(S) EVERY WEEKS
     Route: 042
     Dates: start: 20131014, end: 20131014
  56. CALCIUM FOLINATE [Suspect]
     Active Substance: LEUCOVORIN CALCIUM
     Dosage: DAILY DOSE: 745 MG MILLGRAM(S) EVERY WEEKS
     Route: 042
     Dates: start: 20131210, end: 20131210
  57. CALCIUM FOLINATE [Suspect]
     Active Substance: LEUCOVORIN CALCIUM
     Dosage: DAILY DOSE: 745 MG MILLGRAM(S) EVERY WEEKS
     Route: 042
     Dates: start: 20140210, end: 20140210
  58. CALCIUM FOLINATE [Suspect]
     Active Substance: LEUCOVORIN CALCIUM
     Dosage: DAILY DOSE: 800 MG MILLGRAM(S) EVERY WEEKS
     Route: 042
     Dates: start: 20140409, end: 20140409
  59. IRINOTECAN HCL [Suspect]
     Active Substance: IRINOTECAN HYDROCHLORIDE
     Dosage: DAILY DOSE: 75 MG MILLGRAM(S) EVERY WEEKS
     Route: 042
     Dates: start: 20140120, end: 20140416
  60. IRINOTECAN HCL [Suspect]
     Active Substance: IRINOTECAN HYDROCHLORIDE
     Dosage: DAILY DOSE: 75 MG MILLGRAM(S) EVERY WEEKS
     Route: 042
     Dates: start: 20140319, end: 20140319
  61. IRINOTECAN HCL [Suspect]
     Active Substance: IRINOTECAN HYDROCHLORIDE
     Dosage: DAILY DOSE: 120 MG MILLGRAM(S) EVERY WEEKS
     Route: 042
     Dates: start: 20130924, end: 20130924
  62. AVASTIN [Suspect]
     Active Substance: BEVACIZUMAB
     Indication: COLORECTAL CANCER METASTATIC
     Dosage: 5 MG/KG(440?415 MG)
     Route: 042
     Dates: start: 20131001, end: 20131001
  63. FLUOROURACIL. [Suspect]
     Active Substance: FLUOROURACIL
     Dosage: DAILY DOSE: 2500 MG MILLGRAM(S) EVERY WEEKS
     Route: 042
     Dates: start: 20131110, end: 20131111
  64. FLUOROURACIL. [Suspect]
     Active Substance: FLUOROURACIL
     Dosage: DAILY DOSE: 1850 MG MILLGRAM(S) EVERY WEEKS
     Route: 042
     Dates: start: 20140127, end: 20140128
  65. FLUOROURACIL. [Suspect]
     Active Substance: FLUOROURACIL
     Dosage: DAILY DOSE: 1850 MG MILLGRAM(S) EVERY WEEKS
     Route: 042
     Dates: start: 20140217, end: 20140218
  66. BERLINSULIN H 30/70 [Concomitant]
     Indication: DIABETES MELLITUS
     Dosage: 30/70
     Route: 058
     Dates: start: 1999
  67. CALCIUM FOLINATE [Suspect]
     Active Substance: LEUCOVORIN CALCIUM
     Dosage: DAILY DOSE: 745 MG MILLGRAM(S) EVERY WEEKS
     Route: 042
     Dates: start: 20130127, end: 20130127
  68. IRINOTECAN HCL [Suspect]
     Active Substance: IRINOTECAN HYDROCHLORIDE
     Dosage: DAILY DOSE: 75 MG MILLGRAM(S) EVERY WEEKS
     Route: 042
     Dates: start: 20140409, end: 20140409
  69. IRINOTECAN HCL [Suspect]
     Active Substance: IRINOTECAN HYDROCHLORIDE
     Dosage: DAILY DOSE: 75 MG MILLGRAM(S) EVERY WEEKS
     Route: 042
     Dates: start: 20140210, end: 20140210
  70. IRINOTECAN HCL [Suspect]
     Active Substance: IRINOTECAN HYDROCHLORIDE
     Dosage: DAILY DOSE: 75 MG MILLGRAM(S) EVERY WEEKS
     Route: 042
     Dates: start: 20140416, end: 20140416
  71. IRINOTECAN HCL [Suspect]
     Active Substance: IRINOTECAN HYDROCHLORIDE
     Dosage: DAILY DOSE: 90 MG MILLGRAM(S) EVERY WEEKS
     Route: 042
     Dates: start: 20131119, end: 20131119
  72. IRINOTECAN HCL [Suspect]
     Active Substance: IRINOTECAN HYDROCHLORIDE
     Dosage: DAILY DOSE: 90 MG MILLGRAM(S) EVERY WEEKS
     Route: 042
     Dates: start: 20131105, end: 20131105
  73. IRINOTECAN HCL [Suspect]
     Active Substance: IRINOTECAN HYDROCHLORIDE
     Dosage: DAILY DOSE: 75 MG MILLGRAM(S) EVERY WEEKS
     Route: 042
     Dates: start: 20140203, end: 20140203
  74. FLUOROURACIL. [Suspect]
     Active Substance: FLUOROURACIL
     Indication: COLORECTAL CANCER METASTATIC
     Dosage: DAILY DOSE: 1850 MG MILLGRAM(S) EVERY WEEKS
     Route: 042
     Dates: start: 20140409, end: 20140410
  75. FLUOROURACIL. [Suspect]
     Active Substance: FLUOROURACIL
     Dosage: DAILY DOSE: 2500 MG MILLGRAM(S) EVERY WEEKS
     Route: 042
     Dates: start: 20130924, end: 20130925
  76. FLUOROURACIL. [Suspect]
     Active Substance: FLUOROURACIL
     Dosage: DAILY DOSE: 1850 MG MILLGRAM(S) EVERY WEEKS
     Route: 042
     Dates: start: 20140203, end: 20140204
  77. SIMVASTATIN. [Concomitant]
     Active Substance: SIMVASTATIN
     Indication: HYPERLIPIDAEMIA
     Route: 048
     Dates: start: 1999

REACTIONS (5)
  - Abdominal pain upper [Fatal]
  - Anaemia [Recovered/Resolved]
  - Neoplasm progression [Fatal]
  - Diarrhoea [Recovered/Resolved]
  - Vomiting [Recovered/Resolved]

NARRATIVE: CASE EVENT DATE: 20131014
